FAERS Safety Report 11563232 (Version 1)
Quarter: 2015Q3

REPORT INFORMATION
  Report Type: Spontaneous
  Country: CN (occurrence: CN)
  Receive Date: 20150928
  Receipt Date: 20150928
  Transmission Date: 20151125
  Serious: Yes (Other)
  Sender: FDA-Public Use
  Company Number: CN-JNJFOC-20150916720

PATIENT
  Age: 65 Year
  Sex: Male

DRUGS (5)
  1. DUROGESIC D-TRANS [Suspect]
     Active Substance: FENTANYL
     Indication: CANCER PAIN
     Dosage: 50 MCG/HR*5
     Route: 062
     Dates: start: 20150908
  2. DUROGESIC D-TRANS [Suspect]
     Active Substance: FENTANYL
     Indication: CANCER PAIN
     Dosage: 25MCG/HR*5
     Route: 062
     Dates: start: 20150908
  3. MORPHINE [Concomitant]
     Active Substance: MORPHINE
     Indication: PRODUCT USED FOR UNKNOWN INDICATION
     Route: 065
  4. DUROGESIC D-TRANS [Suspect]
     Active Substance: FENTANYL
     Indication: CANCER PAIN
     Dosage: 25 MCG/HR*5
     Route: 062
  5. TRAMADOL. [Concomitant]
     Active Substance: TRAMADOL
     Indication: PRODUCT USED FOR UNKNOWN INDICATION
     Route: 065

REACTIONS (3)
  - Drug ineffective [Unknown]
  - Hypoaesthesia [Unknown]
  - Depressed level of consciousness [Unknown]
